FAERS Safety Report 14121836 (Version 1)
Quarter: 2017Q4

REPORT INFORMATION
  Report Type: Spontaneous
  Country: ZA (occurrence: ZA)
  Receive Date: 20171024
  Receipt Date: 20171024
  Transmission Date: 20180321
  Serious: Yes (Hospitalization)
  Sender: FDA-Public Use
  Company Number: ZA-SA-2017SA201271

PATIENT
  Age: 56 Year
  Sex: Female

DRUGS (3)
  1. PLASMOQUINE [Suspect]
     Active Substance: CHLOROQUINE SULFATE
     Route: 065
  2. ARAVA [Suspect]
     Active Substance: LEFLUNOMIDE
     Route: 048
  3. ENBREL [Suspect]
     Active Substance: ETANERCEPT
     Indication: RHEUMATOID ARTHRITIS
     Route: 058
     Dates: start: 201210

REACTIONS (5)
  - Herpes zoster [Unknown]
  - Hypoaesthesia [Recovered/Resolved]
  - Encephalitis [Unknown]
  - Bronchitis [Unknown]
  - Immune system disorder [Unknown]

NARRATIVE: CASE EVENT DATE: 201705
